FAERS Safety Report 4440409-3 (Version None)
Quarter: 2004Q3

REPORT INFORMATION
  Report Type: 
  Country: None (occurrence: None)
  Receive Date: 20040728
  Receipt Date: 20040319
  Transmission Date: 20050211
  Serious: No
  Sender: FDA-Public Use
  Company Number: USA040362661

PATIENT
  Age: 15 Year
  Sex: Male
  Weight: 77 kg

DRUGS (3)
  1. STRATTERA [Suspect]
     Indication: ATTENTION DEFICIT/HYPERACTIVITY DISORDER
     Dosage: 60 MG/1 DAY
     Dates: start: 20030301
  2. FLUOXETINE [Concomitant]
  3. CLONIDINE HCL [Concomitant]

REACTIONS (3)
  - ASTHMA [None]
  - VIRAL INFECTION [None]
  - WEIGHT DECREASED [None]
